FAERS Safety Report 16851341 (Version 5)
Quarter: 2023Q2

REPORT INFORMATION
  Report Type: Spontaneous
  Country: US (occurrence: US)
  Receive Date: 20190925
  Receipt Date: 20230606
  Transmission Date: 20230721
  Serious: Yes (Disabling, Other)
  Sender: FDA-Public Use
  Company Number: US-PFIZER INC-2019410949

PATIENT
  Age: 55 Year
  Sex: Female

DRUGS (2)
  1. XELJANZ XR [Suspect]
     Active Substance: TOFACITINIB CITRATE
     Indication: Rheumatoid arthritis
     Dosage: 11 MG, DAILY
     Route: 048
     Dates: start: 2019
  2. XELJANZ XR [Suspect]
     Active Substance: TOFACITINIB CITRATE
     Indication: Lupus-like syndrome
     Dosage: 11 MG, DAILY
     Route: 048
     Dates: start: 201901

REACTIONS (13)
  - Systemic lupus erythematosus [Unknown]
  - Disability [Unknown]
  - Inflammation [Unknown]
  - Alopecia [Not Recovered/Not Resolved]
  - Hypertrichosis [Not Recovered/Not Resolved]
  - Muscle spasms [Unknown]
  - Hormone level abnormal [Unknown]
  - Nausea [Unknown]
  - Headache [Unknown]
  - Asthenia [Unknown]
  - Heart rate increased [Unknown]
  - Post-traumatic stress disorder [Unknown]
  - Product dose omission issue [Unknown]
